FAERS Safety Report 17145721 (Version 2)
Quarter: 2019Q4

REPORT INFORMATION
  Report Type: Report from Study
  Country: DE (occurrence: DE)
  Receive Date: 20191212
  Receipt Date: 20191219
  Transmission Date: 20200122
  Serious: Yes (Hospitalization, Other)
  Sender: FDA-Public Use
  Company Number: DE-SEATTLE GENETICS-2019SGN04552

PATIENT

DRUGS (8)
  1. BRENTUXIMAB VEDOTIN-MPI [Suspect]
     Active Substance: BRENTUXIMAB VEDOTIN
     Indication: HODGKIN^S DISEASE
  2. BRENTUXIMAB VEDOTIN-MPI [Suspect]
     Active Substance: BRENTUXIMAB VEDOTIN
     Indication: HODGKIN^S DISEASE
     Dosage: 96 MILLIGRAM/SQ. METER
     Route: 065
     Dates: start: 20191203
  3. CYCLOPHOSPHAMIDE. [Suspect]
     Active Substance: CYCLOPHOSPHAMIDE
     Indication: HODGKIN^S DISEASE
     Dosage: 2000 MILLIGRAM/SQ. METER
     Route: 065
     Dates: start: 20191204
  4. DOXORUBICIN [Suspect]
     Active Substance: DOXORUBICIN
     Indication: HODGKIN^S DISEASE
     Dosage: 123 MILLIGRAM/SQ. METER
     Route: 065
     Dates: start: 20191204
  5. DOXORUBICIN [Suspect]
     Active Substance: DOXORUBICIN
     Indication: HODGKIN^S DISEASE
  6. ETOPOSIDE. [Suspect]
     Active Substance: ETOPOSIDE
     Indication: HODGKIN^S DISEASE
     Dosage: 720 MILLIGRAM/SQ. METER
     Route: 065
     Dates: start: 20191204
  7. DACARBAZINE. [Suspect]
     Active Substance: DACARBAZINE
     Indication: HODGKIN^S DISEASE
     Dosage: 820 MILLIGRAM/SQ. METER
     Route: 065
     Dates: start: 20191205
  8. DEXAMETHASONE. [Suspect]
     Active Substance: DEXAMETHASONE
     Indication: HODGKIN^S DISEASE
     Dosage: 160 MILLIGRAM/SQ. METER
     Route: 065
     Dates: start: 20191204

REACTIONS (2)
  - Administration site extravasation [Recovered/Resolved]
  - Orthostatic intolerance [Unknown]

NARRATIVE: CASE EVENT DATE: 20191204
